FAERS Safety Report 9591402 (Version 1)
Quarter: 2013Q4

REPORT INFORMATION
  Report Type: Spontaneous
  Country: US (occurrence: US)
  Receive Date: 20131003
  Receipt Date: 20131003
  Transmission Date: 20140711
  Serious: No
  Sender: FDA-Public Use
  Company Number: US-AMGEN-USASP2012080594

PATIENT
  Age: 58 Year
  Sex: Female

DRUGS (2)
  1. ENBREL [Suspect]
     Indication: RHEUMATOID ARTHRITIS
     Dosage: 25 MG BIWEEKLY, UNK
     Dates: start: 20121113
  2. METHOTREXATE [Concomitant]
     Dosage: UNK

REACTIONS (6)
  - Skin disorder [Not Recovered/Not Resolved]
  - Skin ulcer [Recovered/Resolved]
  - Musculoskeletal stiffness [Recovered/Resolved]
  - Pain in extremity [Recovered/Resolved]
  - Arthralgia [Recovered/Resolved]
  - Injection site bruising [Not Recovered/Not Resolved]
